FAERS Safety Report 4396040-1 (Version None)
Quarter: 2004Q2

REPORT INFORMATION
  Report Type: 
  Country: None (occurrence: None)
  Receive Date: 20040621
  Receipt Date: 20031117
  Transmission Date: 20050107
  Serious: Yes (Death)
  Sender: FDA-Public Use
  Company Number: USA-2003-0010837

PATIENT
  Age: 45 Year
  Sex: Male
  Weight: 97.5 kg

DRUGS (8)
  1. OXYCONTIN [Suspect]
  2. DILTIAZEM [Suspect]
  3. FLURAZEPAM [Suspect]
  4. CHLORDIAZEPOXIDE [Suspect]
  5. ALPRAZOLAM [Suspect]
  6. FLUOXETINE [Suspect]
  7. OLANZAPINE [Suspect]
  8. MIRTAZAPINE [Suspect]

REACTIONS (2)
  - ACCIDENTAL OVERDOSE [None]
  - MULTIPLE DRUG OVERDOSE [None]
